FAERS Safety Report 9293558 (Version 1)
Quarter: 2013Q2

REPORT INFORMATION
  Report Type: Spontaneous
  Country: ES (occurrence: ES)
  Receive Date: 20130516
  Receipt Date: 20130516
  Transmission Date: 20140414
  Serious: Yes (Hospitalization)
  Sender: FDA-Public Use
  Company Number: ES-GLAXOSMITHKLINE-B0891785A

PATIENT
  Age: 75 Year
  Sex: Female

DRUGS (4)
  1. REVOLADE [Suspect]
     Indication: IDIOPATHIC THROMBOCYTOPENIC PURPURA
     Dosage: 50MG PER DAY
     Route: 048
     Dates: start: 20130320, end: 20130321
  2. VIREAD [Concomitant]
     Indication: HEPATITIS B
     Dosage: 245MG PER DAY
     Route: 048
     Dates: start: 201302, end: 20130319
  3. OMEPRAZOLE [Concomitant]
     Dosage: 20MG PER DAY
     Route: 048
  4. LORAZEPAM [Concomitant]
     Dosage: 1MG PER DAY
     Route: 048

REACTIONS (2)
  - Liver injury [Recovered/Resolved]
  - Hypertransaminasaemia [Recovered/Resolved]
